FAERS Safety Report 21844394 (Version 1)
Quarter: 2023Q1

REPORT INFORMATION
  Report Type: Spontaneous
  Country: US (occurrence: US)
  Receive Date: 20230110
  Receipt Date: 20230110
  Transmission Date: 20230417
  Serious: No
  Sender: FDA-Public Use
  Company Number: US-MYLANLABS-2022M1122226

PATIENT

DRUGS (1)
  1. XALATAN [Suspect]
     Active Substance: LATANOPROST
     Indication: Intraocular pressure increased
     Dosage: UNK
     Route: 065

REACTIONS (2)
  - Product use complaint [Unknown]
  - Product use issue [Unknown]
